FAERS Safety Report 5232185-1 (Version None)
Quarter: 2007Q1

REPORT INFORMATION
  Report Type: 
  Country: None (occurrence: None)
  Receive Date: 20070206
  Receipt Date: 20070130
  Transmission Date: 20070707
  Serious: Yes (Hospitalization)
  Sender: FDA-Public Use
  Company Number: GR-SHR-GR-2007-003076

PATIENT
  Age: 71 Year
  Sex: Male

DRUGS (8)
  1. MAGNEVIST [Suspect]
     Dosage: 20 ML, 1 DOSE
     Route: 042
     Dates: start: 20070122, end: 20070122
  2. ATACAND [Concomitant]
     Dosage: 16 UNK, UNK
  3. CONTROLOC [Concomitant]
  4. EPANUTIN [Concomitant]
     Dosage: 100 UNK, UNK
  5. MEDROL [Concomitant]
  6. NORVASC [Concomitant]
     Dosage: 5 UNK, UNK
  7. TENORMIN [Concomitant]
     Dosage: 100 UNK, UNK
  8. HORMONES AND RELATED AGENTS [Concomitant]
     Indication: PROSTATE CANCER

REACTIONS (5)
  - DYSPNOEA [None]
  - ERYTHEMA [None]
  - EYELID OEDEMA [None]
  - HYPOXIA [None]
  - LIP OEDEMA [None]
